FAERS Safety Report 14576268 (Version 1)
Quarter: 2018Q1

REPORT INFORMATION
  Report Type: Spontaneous
  Country: US (occurrence: US)
  Receive Date: 20180226
  Receipt Date: 20180226
  Transmission Date: 20180509
  Serious: Yes (Hospitalization, Other)
  Sender: FDA-Public Use
  Company Number: None

PATIENT
  Age: 68 Year
  Sex: Male
  Weight: 65.77 kg

DRUGS (5)
  1. VOLTAREN [Suspect]
     Active Substance: DICLOFENAC SODIUM
     Indication: ARTHRALGIA
     Route: 061
     Dates: start: 20171125, end: 20171125
  2. LEVOTHYROXINE. [Concomitant]
     Active Substance: LEVOTHYROXINE
  3. ALEVE [Concomitant]
     Active Substance: NAPROXEN SODIUM
  4. METOPROLOL. [Concomitant]
     Active Substance: METOPROLOL
  5. CREAMS [Concomitant]

REACTIONS (1)
  - Chemical burn [None]

NARRATIVE: CASE EVENT DATE: 20171125
